FAERS Safety Report 7997749 (Version 2)
Quarter: 2013Q2

REPORT INFORMATION
  Report Type: Spontaneous
  Country: US (occurrence: US)
  Receive Date: 20110620
  Receipt Date: 20130426
  Transmission Date: 20140414
  Serious: Yes (Other)
  Sender: FDA-Public Use
  Company Number: US-ROCHE-734094

PATIENT
  Sex: Female
  Weight: 75.3 kg

DRUGS (1)
  1. ACCUTANE [Suspect]
     Indication: ACNE
     Route: 065
     Dates: start: 199401, end: 19950601

REACTIONS (7)
  - Colitis ulcerative [Unknown]
  - Gastrointestinal injury [Unknown]
  - Inflammatory bowel disease [Unknown]
  - Depression [Unknown]
  - Large intestine polyp [Unknown]
  - Haemorrhoids [Unknown]
  - Obesity [Unknown]
